FAERS Safety Report 8967688 (Version 2)
Quarter: 2013Q1

REPORT INFORMATION
  Report Type: Spontaneous
  Country: US (occurrence: None)
  Receive Date: 20121206
  Receipt Date: 20121218
  Transmission Date: 20140127
  Serious: Yes (Other)
  Sender: FDA-Public Use
  Company Number: US-1188821

PATIENT
  Age: 70 Year
  Sex: Female
  Weight: 78.47 kg

DRUGS (4)
  1. TRAVATAN Z [Suspect]
     Indication: GLAUCOMA
     Dosage: 1 GTT QD OU OPHTHALMIC
     Dates: start: 20110923, end: 20110926
  2. NEXIUM [Concomitant]
  3. BENADRYL [Concomitant]
  4. MELATONIN [Concomitant]

REACTIONS (15)
  - Depression [None]
  - Anxiety [None]
  - Confusional state [None]
  - Gait disturbance [None]
  - Memory impairment [None]
  - Mental impairment [None]
  - Ocular hyperaemia [None]
  - Lacrimation increased [None]
  - Eye irritation [None]
  - Fatigue [None]
  - Asthenia [None]
  - Insomnia [None]
  - Influenza [None]
  - Gastrooesophageal reflux disease [None]
  - Bradyphrenia [None]
